FAERS Safety Report 6490817-4 (Version None)
Quarter: 2009Q4

REPORT INFORMATION
  Report Type: 
  Country: None (occurrence: None)
  Receive Date: 20091204
  Receipt Date: 20091124
  Transmission Date: 20100525
  Serious: Yes (Hospitalization, Other)
  Sender: FDA-Public Use
  Company Number: 2009029282

PATIENT
  Age: 64 Year
  Sex: Female
  Weight: 100.6985 kg

DRUGS (16)
  1. PROVIGIL [Suspect]
     Indication: PARKINSON'S DISEASE
     Dosage: 400 MG (200 MG, 2 IN 1 D) ORAL
     Route: 048
     Dates: start: 20040101, end: 20090101
  2. PROVIGIL [Suspect]
     Indication: PARKINSON'S DISEASE
     Dosage: 400 MG (200 MG, 2 IN 1 D) ORAL
     Route: 048
     Dates: start: 20090101
  3. REQUIP XL [Suspect]
     Dosage: (10 MG) (12 MG)
     Dates: start: 20091001, end: 20090101
  4. REQUIP XL [Suspect]
     Dosage: (10 MG) (12 MG)
     Dates: start: 20090101, end: 20091001
  5. NAPROXEN [Concomitant]
  6. MIRAPEX [Concomitant]
  7. SINEMET [Concomitant]
  8. LYRICA [Concomitant]
  9. OPANA ER [Concomitant]
  10. NEXIUM [Concomitant]
  11. LACTULOSE [Concomitant]
  12. COLCHICINE (COLCHINE) [Concomitant]
  13. I-PHENYLALANINE (PHENYLALANINE) [Concomitant]
  14. VITAMINS (ERGOCALCIFEROL, ASCORBIC ACID, TOCOPHERO, FOLIC ACID, RETINO [Concomitant]
  15. TUNAL OIL (ALL OTHER THERAPEUTIC PRODUCTS) [Concomitant]
  16. HERBOLOGICAL PROBIOTIC BLEND (PANCREATIN, BROMELAINS, PAPAIN, MENTHA X [Concomitant]

REACTIONS (10)
  - CHONDROCALCINOSIS PYROPHOSPHATE [None]
  - DRUG INEFFECTIVE [None]
  - FALL [None]
  - GASTROOESOPHAGEAL REFLUX DISEASE [None]
  - LIGAMENT RUPTURE [None]
  - MUSCLE RUPTURE [None]
  - OEDEMA PERIPHERAL [None]
  - PULMONARY THROMBOSIS [None]
  - SPINAL COLUMN STENOSIS [None]
  - TRANSIENT ISCHAEMIC ATTACK [None]
